FAERS Safety Report 5596429-9 (Version None)
Quarter: 2008Q1

REPORT INFORMATION
  Report Type: 
  Country: None (occurrence: None)
  Receive Date: 20080118
  Receipt Date: 20080107
  Transmission Date: 20080703
  Serious: Yes (Other)
  Sender: FDA-Public Use
  Company Number: US-PFIZER INC-2007062319

PATIENT
  Age: 44 Year
  Sex: Male
  Weight: 125.6 kg

DRUGS (12)
  1. CHANTIX [Suspect]
     Indication: SMOKING CESSATION THERAPY
  2. ACCUPRIL [Concomitant]
  3. TRICOR [Concomitant]
  4. LIPITOR [Concomitant]
  5. FISH OIL [Concomitant]
  6. CENTRUM [Concomitant]
  7. PERCOCET [Concomitant]
  8. NOVOLOG [Concomitant]
  9. LANTUS [Concomitant]
  10. ACTOS [Concomitant]
  11. MOTRIN [Concomitant]
  12. METFORMIN HCL [Concomitant]

REACTIONS (4)
  - ALCOHOL USE [None]
  - DISCOMFORT [None]
  - IMPAIRED DRIVING ABILITY [None]
  - PERSONALITY CHANGE [None]
